FAERS Safety Report 23878044 (Version 1)
Quarter: 2024Q2

REPORT INFORMATION
  Report Type: Spontaneous
  Country: HR (occurrence: HR)
  Receive Date: 20240521
  Receipt Date: 20240521
  Transmission Date: 20240716
  Serious: Yes (Other)
  Sender: FDA-Public Use
  Company Number: HR-AMGEN-HRVSP2024097321

PATIENT
  Sex: Male

DRUGS (2)
  1. SOTORASIB [Suspect]
     Active Substance: SOTORASIB
     Indication: Lung adenocarcinoma
     Dosage: 960 MILLIGRAM
     Route: 065
     Dates: start: 202302, end: 202305
  2. SOTORASIB [Suspect]
     Active Substance: SOTORASIB
     Dosage: UNK, REDUCED DOSE
     Route: 065
     Dates: end: 202401

REACTIONS (2)
  - Lung adenocarcinoma [Unknown]
  - Diarrhoea [Unknown]
